FAERS Safety Report 4709024-8 (Version None)
Quarter: 2005Q3

REPORT INFORMATION
  Report Type: 
  Country: None (occurrence: None)
  Receive Date: 20050707
  Receipt Date: 20050622
  Transmission Date: 20060218
  Serious: Yes (Other)
  Sender: FDA-Public Use
  Company Number: GXBR2005US01095

PATIENT
  Age: 20 Year
  Sex: Female
  Weight: 91 kg

DRUGS (2)
  1. PENICILLIN G POTASSIUM [Suspect]
     Dosage: 5 MU IV ONCE
     Route: 042
     Dates: start: 20050621
  2. DEXTROSE IN LACTATED RINGER'S (CALCIUM DIHYDRATE, GLUCOSE, POTASSIUM C [Concomitant]

REACTIONS (8)
  - ANAPHYLACTIC REACTION [None]
  - CAESAREAN SECTION [None]
  - DRUG EXPOSURE DURING PREGNANCY [None]
  - EYE SWELLING [None]
  - FACE OEDEMA [None]
  - OCULAR HYPERAEMIA [None]
  - OEDEMA [None]
  - VOMITING [None]
